FAERS Safety Report 7503761-8 (Version None)
Quarter: 2011Q2

REPORT INFORMATION
  Report Type: 
  Country: None (occurrence: None)
  Receive Date: 20110524
  Receipt Date: 20110524
  Transmission Date: 20111010
  Serious: Yes (Death)
  Sender: FDA-Public Use
  Company Number: None

PATIENT
  Sex: Female
  Weight: 57 kg

DRUGS (1)
  1. PACLITAXEL [Suspect]
     Indication: NON-SMALL CELL LUNG CANCER
     Dosage: 72.45 ONE TIME IV
     Route: 042
     Dates: start: 20110331, end: 20110331

REACTIONS (8)
  - FEELING ABNORMAL [None]
  - PNEUMONIA [None]
  - HYPOPNOEA [None]
  - CARDIO-RESPIRATORY ARREST [None]
  - ANAEMIA [None]
  - PULSE ABSENT [None]
  - PULMONARY EMBOLISM [None]
  - HYPOXIA [None]
